FAERS Safety Report 25238904 (Version 1)
Quarter: 2025Q2

REPORT INFORMATION
  Report Type: Spontaneous
  Country: FR (occurrence: FR)
  Receive Date: 20250425
  Receipt Date: 20250425
  Transmission Date: 20250717
  Serious: Yes (Hospitalization, Other)
  Sender: AUROBINDO
  Company Number: FR-AFSSAPS-MP2025000507

PATIENT
  Age: 62 Year
  Sex: Male
  Weight: 78.5 kg

DRUGS (1)
  1. RIBAVIRIN [Suspect]
     Active Substance: RIBAVIRIN
     Indication: Hepatitis viral
     Dosage: 400 MILLIGRAM, ONCE A DAY
     Route: 048
     Dates: start: 20250227, end: 20250318

REACTIONS (1)
  - Interstitial lung disease [Not Recovered/Not Resolved]

NARRATIVE: CASE EVENT DATE: 20250301
